FAERS Safety Report 21808343 (Version 1)
Quarter: 2023Q1

REPORT INFORMATION
  Report Type: Report from Study
  Country: US (occurrence: US)
  Receive Date: 20230103
  Receipt Date: 20230103
  Transmission Date: 20230418
  Serious: No
  Sender: FDA-Public Use
  Company Number: US-ABBVIE-4226414

PATIENT
  Age: 54 Year
  Sex: Female

DRUGS (1)
  1. HUMIRA [Suspect]
     Active Substance: ADALIMUMAB
     Indication: Hidradenitis
     Dosage: 40 MILLIGRAM
     Route: 058

REACTIONS (4)
  - Cardiac disorder [Recovered/Resolved]
  - Asthma [Recovered/Resolved]
  - Unevaluable event [Recovered/Resolved]
  - Influenza virus test positive [Recovered/Resolved]

NARRATIVE: CASE EVENT DATE: 20221118
